FAERS Safety Report 9789279 (Version 1)
Quarter: 2013Q4

REPORT INFORMATION
  Report Type: Spontaneous
  Country: GB (occurrence: GB)
  Receive Date: 20131231
  Receipt Date: 20131231
  Transmission Date: 20140711
  Serious: Yes (Hospitalization, Other)
  Sender: FDA-Public Use
  Company Number: GB-ACTAVIS-2013-23560

PATIENT
  Age: 83 Year
  Sex: Male

DRUGS (9)
  1. OXYCODONE (UNKNOWN) [Suspect]
     Indication: PAIN
     Dosage: 30 MG, BID;  MODIFIED RELEASE
     Route: 048
     Dates: start: 20130729
  2. OXYCODONE (UNKNOWN) [Suspect]
     Dosage: 5 MG, PRN; LIQUID
     Route: 048
     Dates: start: 20130729
  3. ASPIRIN [Concomitant]
     Indication: PRODUCT USED FOR UNKNOWN INDICATION
     Dosage: UNK
     Route: 065
  4. LAMOTRIGINE [Concomitant]
     Indication: PRODUCT USED FOR UNKNOWN INDICATION
     Dosage: UNK
     Route: 065
  5. SIMVASTATIN [Concomitant]
     Indication: PRODUCT USED FOR UNKNOWN INDICATION
     Dosage: UNK
     Route: 065
  6. FUROSEMIDE [Concomitant]
     Indication: PRODUCT USED FOR UNKNOWN INDICATION
     Dosage: UNK
     Route: 065
  7. PARACETAMOL [Concomitant]
     Indication: PRODUCT USED FOR UNKNOWN INDICATION
     Dosage: UNK
     Route: 065
  8. SERETIDE [Concomitant]
     Indication: PRODUCT USED FOR UNKNOWN INDICATION
     Dosage: UNK
     Route: 065
  9. SALBUTAMOL [Concomitant]
     Indication: PRODUCT USED FOR UNKNOWN INDICATION
     Dosage: UNK
     Route: 065

REACTIONS (3)
  - Constipation [Recovering/Resolving]
  - Abdominal pain [Not Recovered/Not Resolved]
  - Urinary retention [Not Recovered/Not Resolved]
